FAERS Safety Report 6818518-0 (Version None)
Quarter: 2010Q3

REPORT INFORMATION
  Report Type: 
  Country: None (occurrence: None)
  Receive Date: 20100706
  Receipt Date: 20080331
  Transmission Date: 20110219
  Serious: No
  Sender: FDA-Public Use
  Company Number: US-PFIZER INC-2008028650

PATIENT
  Sex: Male
  Weight: 88.636 kg

DRUGS (1)
  1. ZITHROMAX [Suspect]
     Indication: RESPIRATORY TRACT INFECTION
     Dates: start: 20080301, end: 20080301

REACTIONS (3)
  - ACNE [None]
  - MALAISE [None]
  - TINNITUS [None]
